FAERS Safety Report 8119912-0 (Version None)
Quarter: 2012Q1

REPORT INFORMATION
  Report Type: 
  Country: None (occurrence: None)
  Receive Date: 20120206
  Receipt Date: 20120206
  Transmission Date: 20120608
  Serious: Yes (Other)
  Sender: FDA-Public Use
  Company Number: None

PATIENT
  Age: 71 Year
  Sex: Female
  Weight: 57.6068 kg

DRUGS (1)
  1. LEVOFLOXACIN [Suspect]
     Indication: DISCOMFORT
     Dosage: 1 TABLET DAILY MOUTH
     Route: 048

REACTIONS (1)
  - VULVOVAGINAL BURNING SENSATION [None]
